FAERS Safety Report 4443946-0 (Version None)
Quarter: 2004Q3

REPORT INFORMATION
  Report Type: 
  Country: None (occurrence: None)
  Receive Date: 20040729
  Receipt Date: 20040524
  Transmission Date: 20050211
  Serious: Yes (Hospitalization)
  Sender: FDA-Public Use
  Company Number: US-JNJFOC-20040505908

PATIENT
  Sex: 0

DRUGS (1)
  1. RISPERDAL [Suspect]
     Dosage: 8 MG, ORAL
     Route: 048

REACTIONS (1)
  - TRISMUS [None]
